FAERS Safety Report 8120864-8 (Version None)
Quarter: 2012Q1

REPORT INFORMATION
  Report Type: 
  Country: None (occurrence: None)
  Receive Date: 20120206
  Receipt Date: 20120206
  Transmission Date: 20120608
  Serious: Yes (Life-Threatening, Hospitalization, Disabling, Other)
  Sender: FDA-Public Use
  Company Number: None

PATIENT
  Age: 54 Year
  Sex: Male
  Weight: 113.3993 kg

DRUGS (1)
  1. LISINOPRIL [Suspect]
     Dosage: 10MG 1 ONCE DAY
     Dates: start: 20120123

REACTIONS (1)
  - DYSPEPSIA [None]
